FAERS Safety Report 19478768 (Version 16)
Quarter: 2024Q3

REPORT INFORMATION
  Report Type: Spontaneous
  Country: IN (occurrence: IN)
  Receive Date: 20210630
  Receipt Date: 20240709
  Transmission Date: 20241017
  Serious: Yes (Other)
  Sender: PFIZER
  Company Number: IN-PFIZER INC-2021087097

PATIENT
  Age: 54 Year
  Sex: Female
  Weight: 95 kg

DRUGS (26)
  1. PALBOCICLIB [Suspect]
     Active Substance: PALBOCICLIB
     Indication: Breast cancer metastatic
     Dosage: 125 MG, 1X/DAY
     Route: 048
     Dates: start: 20201126
  2. PALBOCICLIB [Suspect]
     Active Substance: PALBOCICLIB
     Dosage: 100 MG, 1X/DAY
     Route: 048
     Dates: end: 20210909
  3. PALBOCICLIB [Suspect]
     Active Substance: PALBOCICLIB
     Dosage: 125 MG, 1X/DAY
     Route: 048
     Dates: start: 20210909
  4. PALBOCICLIB [Suspect]
     Active Substance: PALBOCICLIB
     Dosage: 125 MG, 1X/DAY
     Route: 048
     Dates: start: 20211008
  5. PALBOCICLIB [Suspect]
     Active Substance: PALBOCICLIB
     Dosage: ONCE A DAY 21 DAYS THEN GAP FOR 1 WEEK
     Route: 048
  6. PALBOCICLIB [Suspect]
     Active Substance: PALBOCICLIB
     Dosage: OD 3 WEEKS ON 1 WEEK OFF
     Route: 048
  7. LETROZOLE [Concomitant]
     Active Substance: LETROZOLE
     Dosage: 2.5 MG, 1X/DAY
  8. LIVOGEN [ASCORBIC ACID;FERROUS FUMARATE;FOLIC ACID;LIVER EXTRACT;VITAM [Concomitant]
     Dosage: 1 TAB, 2X/DAY
     Dates: start: 20201126
  9. FILGRASTIM [Concomitant]
     Active Substance: FILGRASTIM
     Dosage: 300 MG, SC SOS IF TLC LESS THAN 4000
     Route: 058
  10. POLYBION [VITAMINS NOS] [Concomitant]
     Dosage: 10 ML, 2X/DAY
  11. MAGNORATE [Concomitant]
     Dosage: 1 TAB, 2X/DAY
     Dates: start: 20201126
  12. MAGNORATE [Concomitant]
     Dosage: 2 DF, BD
  13. MAGNORATE [Concomitant]
     Dosage: 1 DF, 2X/DAY
  14. PANTOP-D [Concomitant]
     Dosage: UNK
     Dates: start: 20201126
  15. MAXCAL D [Concomitant]
     Dosage: 1 DF, 2X/DAY
     Dates: start: 20201126
  16. LETROZOLE [Concomitant]
     Active Substance: LETROZOLE
     Dosage: 1 DF
     Dates: start: 20201126
  17. LEVOTHYROXINE [Concomitant]
     Active Substance: LEVOTHYROXINE\LEVOTHYROXINE SODIUM
     Indication: Hypothyroidism
     Dosage: BEFORE BREAKFAST
  18. ROSEDAY [Concomitant]
     Indication: Blood cholesterol increased
     Dosage: UNK
  19. FEBUTAX [Concomitant]
     Indication: Blood uric acid increased
     Dosage: UNK
  20. ONDANSETRON HYDROCHLORIDE [Concomitant]
     Active Substance: ONDANSETRON HYDROCHLORIDE
     Dosage: 8 MG, AS NEEDED
  21. BECONEX [VITAMIN B COMPLEX] [Concomitant]
     Dosage: UNK UNK, 1X/DAY
  22. DMAXCAL [Concomitant]
     Dosage: UNK UNK, 1X/DAY
  23. DMAXCAL [Concomitant]
     Dosage: 1 DF, 2X/DAY
  24. MEGACE [Concomitant]
     Active Substance: MEGESTROL ACETATE
     Dosage: 80 MG, 1X/DAY
  25. BECOSULES [ASCORBIC ACID;VITAMIN B NOS] [Concomitant]
     Dosage: 1 DF, 1X/DAY
  26. FEFOL [ASCORBIC ACID;CYANOCOBALAMIN;FERROUS FUMARATE;FOLIC ACID] [Concomitant]
     Dosage: 1 DF, 1X/DAY

REACTIONS (20)
  - Haemorrhage [Unknown]
  - Neoplasm progression [Unknown]
  - White blood cell count decreased [Unknown]
  - Asthenia [Unknown]
  - Blood pressure decreased [Unknown]
  - Haemoglobin decreased [Unknown]
  - Hypomagnesaemia [Unknown]
  - Dyslipidaemia [Unknown]
  - Magnesium deficiency [Unknown]
  - Dyspnoea [Unknown]
  - Oedema [Unknown]
  - Blood magnesium increased [Unknown]
  - Blood glucose increased [Unknown]
  - Blood thyroid stimulating hormone increased [Unknown]
  - Palpitations [Unknown]
  - Blood glucose decreased [Unknown]
  - Spinal osteoarthritis [Unknown]
  - Lymphadenopathy [Unknown]
  - Blood magnesium decreased [Unknown]
  - Product prescribing error [Unknown]

NARRATIVE: CASE EVENT DATE: 20210210
